FAERS Safety Report 8479888-3 (Version None)
Quarter: 2012Q2

REPORT INFORMATION
  Report Type: 
  Country: None (occurrence: None)
  Receive Date: 20120629
  Receipt Date: 20120619
  Transmission Date: 20120825
  Serious: Yes (Hospitalization, Other)
  Sender: FDA-Public Use
  Company Number: DE-ABBOTT-12P-062-0901199-00

PATIENT
  Age: 55 Year
  Sex: Female

DRUGS (10)
  1. ARAVA [Suspect]
     Indication: RHEUMATOID ARTHRITIS
     Dosage: DAILY
     Route: 048
     Dates: start: 20061001, end: 20110101
  2. PANTOPRAZOLE [Concomitant]
     Indication: GASTRIC DISORDER
  3. ARCOXIA [Concomitant]
     Indication: RHEUMATOID ARTHRITIS
  4. NOVALGIN [Concomitant]
     Indication: PRODUCT USED FOR UNKNOWN INDICATION
     Dosage: 4 X 500 MG DAILY
  5. PREDNISOLONE [Concomitant]
     Indication: RHEUMATOID ARTHRITIS
  6. PANTOPRAZOLE [Concomitant]
     Indication: PROPHYLAXIS
  7. HUMIRA [Suspect]
     Indication: RHEUMATOID ARTHRITIS
     Route: 058
     Dates: start: 20110201, end: 20110417
  8. LEFLUNOMIDE [Concomitant]
     Indication: RHEUMATOID ARTHRITIS
     Route: 048
     Dates: start: 20061001
  9. TOCILIZUMAB [Suspect]
     Indication: RHEUMATOID ARTHRITIS
     Dosage: TOTAL 636MG
  10. TOCILIZUMAB [Concomitant]
     Dosage: 636MG
     Dates: start: 20110601

REACTIONS (7)
  - EMPYEMA [None]
  - FATIGUE [None]
  - CHILLS [None]
  - RASH [None]
  - DYSHIDROSIS [None]
  - RHEUMATOID ARTHRITIS [None]
  - SYNOVIAL CYST [None]
